FAERS Safety Report 19662976 (Version 2)
Quarter: 2025Q3

REPORT INFORMATION
  Report Type: Spontaneous
  Country: CA (occurrence: CA)
  Receive Date: 20210805
  Receipt Date: 20250709
  Transmission Date: 20251020
  Serious: Yes (Other)
  Sender: SANOFI AVENTIS
  Company Number: CA-SA-SAC20210729000493

PATIENT
  Age: 73 Year
  Sex: Male

DRUGS (10)
  1. LEFLUNOMIDE [Suspect]
     Active Substance: LEFLUNOMIDE
     Indication: Psoriatic arthropathy
     Route: 065
  2. FOLIC ACID [Suspect]
     Active Substance: FOLIC ACID
     Indication: Psoriatic arthropathy
     Route: 065
  3. INDAPAMIDE [Suspect]
     Active Substance: INDAPAMIDE
     Indication: Psoriatic arthropathy
     Route: 065
  4. METHOTREXATE [Suspect]
     Active Substance: METHOTREXATE
     Indication: Psoriatic arthropathy
     Dosage: 20 MG, QW
     Route: 065
  5. METOPROLOL [Suspect]
     Active Substance: METOPROLOL
     Indication: Psoriatic arthropathy
     Route: 065
  6. REMICADE [Suspect]
     Active Substance: INFLIXIMAB
     Indication: Psoriatic arthropathy
     Route: 065
  7. IMURAN [Suspect]
     Active Substance: AZATHIOPRINE
     Indication: Psoriatic arthropathy
     Route: 065
     Dates: end: 2013
  8. AZITHROMYCIN DIHYDRATE [Concomitant]
     Active Substance: AZITHROMYCIN DIHYDRATE
     Indication: Product used for unknown indication
     Route: 065
  9. CLOPIDOGREL BISULFATE [Concomitant]
     Active Substance: CLOPIDOGREL BISULFATE
     Indication: Product used for unknown indication
     Route: 065
  10. PREVACID [Concomitant]
     Active Substance: LANSOPRAZOLE
     Indication: Product used for unknown indication
     Route: 065

REACTIONS (28)
  - Alanine aminotransferase increased [Recovered/Resolved]
  - Arthritis [Unknown]
  - Blood pressure increased [Recovered/Resolved]
  - Bronchiectasis [Unknown]
  - Drug intolerance [Unknown]
  - Fall [Unknown]
  - Grip strength decreased [Unknown]
  - Hepatic enzyme increased [Unknown]
  - Inflammation [Unknown]
  - Joint swelling [Unknown]
  - Juvenile idiopathic arthritis [Unknown]
  - Musculoskeletal stiffness [Recovering/Resolving]
  - Nail pitting [Unknown]
  - Osteoarthritis [Unknown]
  - Pain in extremity [Unknown]
  - Peripheral swelling [Unknown]
  - Red blood cell sedimentation rate abnormal [Unknown]
  - Transaminases increased [Unknown]
  - Weight decreased [Unknown]
  - Wheezing [Unknown]
  - Arthropathy [Recovered/Resolved]
  - C-reactive protein abnormal [Unknown]
  - Psoriatic arthropathy [Unknown]
  - Diarrhoea [Recovering/Resolving]
  - Infection [Unknown]
  - Weight increased [Unknown]
  - Rash [Unknown]
  - Psoriasis [Unknown]
